FAERS Safety Report 16323525 (Version 1)
Quarter: 2019Q2

REPORT INFORMATION
  Report Type: Spontaneous
  Country: IT (occurrence: IT)
  Receive Date: 20190517
  Receipt Date: 20190517
  Transmission Date: 20190711
  Serious: Yes (Other)
  Sender: FDA-Public Use
  Company Number: IT-HIKMA PHARMACEUTICALS USA INC.-IT-H14001-19-03292

PATIENT
  Age: 56 Year
  Sex: Female
  Weight: 69 kg

DRUGS (7)
  1. SIMVASTATIN. [Concomitant]
     Active Substance: SIMVASTATIN
     Indication: PRODUCT USED FOR UNKNOWN INDICATION
     Dosage: ()
  2. ANNISTER [Concomitant]
     Active Substance: CHOLECALCIFEROL
     Indication: PRODUCT USED FOR UNKNOWN INDICATION
  3. TRIATEC [Concomitant]
     Indication: PRODUCT USED FOR UNKNOWN INDICATION
  4. FLUOROURACIL. [Suspect]
     Active Substance: FLUOROURACIL
     Indication: COLORECTAL ADENOCARCINOMA
     Route: 042
     Dates: start: 20190208, end: 20190405
  5. LEVOLEUCOVORIN. [Concomitant]
     Active Substance: LEVOLEUCOVORIN
     Indication: COLORECTAL ADENOCARCINOMA
     Route: 042
     Dates: start: 20190208, end: 20190405
  6. IRINOTECAN HYDROCHLORIDE TRIHYDRATE [Suspect]
     Active Substance: IRINOTECAN HYDROCHLORIDE
     Indication: COLORECTAL ADENOCARCINOMA
     Route: 042
     Dates: start: 20190208, end: 20190405
  7. ESOMEPRAZOLE SODIUM. [Concomitant]
     Active Substance: ESOMEPRAZOLE SODIUM
     Indication: PRODUCT USED FOR UNKNOWN INDICATION

REACTIONS (2)
  - Swelling face [Recovering/Resolving]
  - Erythema [Recovering/Resolving]

NARRATIVE: CASE EVENT DATE: 20190322
